FAERS Safety Report 10194281 (Version 3)
Quarter: 2015Q1

REPORT INFORMATION
  Report Type: Report from Study
  Country: US (occurrence: US)
  Receive Date: 20140526
  Receipt Date: 20150320
  Transmission Date: 20150720
  Serious: Yes (Death, Other)
  Sender: FDA-Public Use
  Company Number: US-ROCHE-1406523

PATIENT

DRUGS (1)
  1. VISMODEGIB [Suspect]
     Active Substance: VISMODEGIB
     Indication: PANCREATIC CARCINOMA METASTATIC
     Route: 048

REACTIONS (2)
  - Disease progression [Fatal]
  - Jaundice [Recovered/Resolved]

NARRATIVE: CASE EVENT DATE: 20110816
